FAERS Safety Report 8915907 (Version 2)
Quarter: 2012Q4

REPORT INFORMATION
  Report Type: 
  Country: US (occurrence: US)
  Receive Date: 20121119
  Receipt Date: 20121214
  Transmission Date: 20130627
  Serious: Yes (Other)
  Sender: FDA-Public Use
  Company Number: US-PFIZER INC-2012268264

PATIENT
  Age: 74 Year
  Sex: Female

DRUGS (4)
  1. GLYNASE [Suspect]
     Dosage: 6 units
  2. LANTUS SOLOSTAR [Suspect]
     Indication: TYPE 2 DIABETES MELLITUS
     Dosage: 20 IU, 1x/day
     Route: 058
     Dates: start: 201102
  3. LANTUS SOLOSTAR [Suspect]
     Dosage: 15 IU, UNK
     Route: 058
     Dates: start: 201102
  4. GLUCOPHAGE [Suspect]
     Dosage: 2000 units

REACTIONS (2)
  - Blood glucose abnormal [Unknown]
  - Rash [Unknown]
